FAERS Safety Report 5816888-3 (Version None)
Quarter: 2008Q3

REPORT INFORMATION
  Report Type: 
  Country: None (occurrence: None)
  Receive Date: 20080721
  Receipt Date: 20080714
  Transmission Date: 20090109
  Serious: Yes (Death)
  Sender: FDA-Public Use
  Company Number: US-GILEAD-2008-0017235

PATIENT
  Sex: Male
  Weight: 99.88 kg

DRUGS (20)
  1. LETAIRIS [Suspect]
     Indication: PULMONARY ARTERIAL HYPERTENSION
     Route: 048
     Dates: start: 20080430
  2. VIAGRA [Concomitant]
     Route: 048
  3. LASIX [Concomitant]
     Route: 048
  4. METOPROLOL [Concomitant]
     Route: 048
  5. LISINOPRIL [Concomitant]
     Route: 048
  6. GLIPIZIDE [Concomitant]
     Route: 048
  7. METFORMIN ER [Concomitant]
     Route: 048
  8. SIMVASTATIN [Concomitant]
     Route: 048
  9. ADVAIR DISKUS 500/50 [Concomitant]
     Route: 055
  10. FLUNISOLIDE 0.025% SPRAY [Concomitant]
     Route: 055
  11. ALBUTEROL [Concomitant]
     Route: 055
  12. SPIRIVA [Concomitant]
     Route: 055
  13. ASPIRIN [Concomitant]
     Route: 048
  14. PLAVIX [Concomitant]
     Route: 048
  15. FLOMAX [Concomitant]
     Route: 048
  16. OMEPRAZOLE [Concomitant]
     Route: 048
  17. POTASSIUM CHLOR [Concomitant]
     Route: 048
  18. VIT B COMPLEX [Concomitant]
     Route: 048
  19. ASCORBIC ACID [Concomitant]
     Route: 048
  20. VICODIN [Concomitant]
     Route: 048

REACTIONS (1)
  - DEATH [None]
